FAERS Safety Report 7617035-8 (Version None)
Quarter: 2011Q3

REPORT INFORMATION
  Report Type: 
  Country: None (occurrence: None)
  Receive Date: 20110718
  Receipt Date: 20090528
  Transmission Date: 20111222
  Serious: Yes (Death, Hospitalization, Other)
  Sender: FDA-Public Use
  Company Number: US-BAYER-200921738NA

PATIENT
  Age: 69 Year
  Sex: Female
  Weight: 63 kg

DRUGS (21)
  1. TRASYLOL [Suspect]
     Dosage: 200 ML  TIMES 2
     Route: 042
     Dates: start: 19950912, end: 19950912
  2. EPHEDRINE [Concomitant]
     Dosage: 2.5 MG, UNK
  3. BENADRYL [Concomitant]
     Dosage: 50 MG, UNK
     Dates: start: 19950912, end: 19950912
  4. CARDIZEM [Concomitant]
     Dosage: 180 MG/24HR, UNK
     Route: 048
  5. LESCOL [Concomitant]
     Dosage: 20 MG AT BEDTIME
     Route: 048
  6. PROZAC [Concomitant]
     Dosage: 20 MG, UNK
     Route: 048
  7. KEFZOL [Concomitant]
     Dosage: 1 G, UNK
     Route: 042
     Dates: start: 19950912, end: 19950912
  8. CIMETIDINE [Concomitant]
     Dosage: 80 MG AT BEDTIME
     Route: 048
  9. DIPRIVAN [Concomitant]
  10. LIDOCAINE [Concomitant]
     Dosage: 200 MG, UNK
     Route: 042
     Dates: start: 19950912, end: 19950912
  11. TICLID [Concomitant]
     Dosage: 125 MG, BID
     Route: 048
  12. HEPARIN [Concomitant]
     Dosage: UNK
     Route: 042
     Dates: start: 19950906
  13. VALIUM [Concomitant]
     Dosage: 2 / 6 MG
     Route: 042
     Dates: start: 19950912, end: 19950912
  14. MANNITOL [Concomitant]
     Dosage: 6.25 G, UNK
     Route: 042
     Dates: start: 19950912, end: 19950912
  15. PROTAMINE SULFATE [Concomitant]
     Dosage: 560 MG, UNK
     Dates: start: 19950912, end: 19950912
  16. HESPAN IN EXCEL PLASTIC CONTAINER [Concomitant]
     Dosage: 500 ML, UNK
     Dates: start: 19950912, end: 19950912
  17. TRASYLOL [Suspect]
     Indication: CORONARY ARTERY BYPASS
     Dosage: 1 ML, TEST DOSE
     Route: 042
     Dates: start: 19950912, end: 19950912
  18. SCOPOLAMINE [Concomitant]
     Dosage: 0.4
     Route: 042
     Dates: start: 19950912, end: 19950912
  19. TRASYLOL [Suspect]
     Dosage: 200 ML PRIMED
     Route: 042
     Dates: start: 19950912, end: 19950912
  20. MONOKET [Concomitant]
     Dosage: 10 MG, BID
     Route: 048
  21. HEPARIN [Concomitant]
     Dosage: 46,000 UNITS
     Dates: start: 19950912, end: 19950912

REACTIONS (6)
  - RENAL INJURY [None]
  - PAIN [None]
  - RENAL FAILURE ACUTE [None]
  - INJURY [None]
  - UNEVALUABLE EVENT [None]
  - RENAL FAILURE [None]
